FAERS Safety Report 6134698-7 (Version None)
Quarter: 2009Q1

REPORT INFORMATION
  Report Type: 
  Country: None (occurrence: None)
  Receive Date: 20090327
  Receipt Date: 20090318
  Transmission Date: 20090719
  Serious: Yes (Disabling, Other)
  Sender: FDA-Public Use
  Company Number: GB-ROCHE-613652

PATIENT
  Sex: Female
  Weight: 99.7 kg

DRUGS (11)
  1. ORLISTAT [Suspect]
     Indication: WEIGHT DECREASED
     Route: 048
     Dates: start: 20081208, end: 20081226
  2. ASPIRIN [Concomitant]
     Indication: AORTIC STENOSIS
     Route: 048
  3. SIMVASTATIN [Concomitant]
     Route: 048
  4. METFORMIN [Concomitant]
     Route: 048
  5. DOTHIEPIN HYDROCHLORIDE [Concomitant]
     Indication: SOMNOLENCE
     Dates: start: 20040729
  6. ESOMEPRAZOLE [Concomitant]
     Indication: GASTRITIS
     Route: 048
     Dates: start: 20030923
  7. FUROSEMIDE [Concomitant]
     Indication: AORTIC STENOSIS
     Route: 048
     Dates: start: 20041208
  8. ADIZEM XL [Concomitant]
     Indication: AORTIC STENOSIS
     Route: 048
     Dates: start: 20030304
  9. MASNIDIPINE [Concomitant]
     Indication: HYPERTENSION
  10. SALBUTAMOL [Concomitant]
     Indication: ASTHMA
  11. SALMETEROL [Concomitant]
     Indication: ASTHMA

REACTIONS (3)
  - CEREBROVASCULAR ACCIDENT [None]
  - LOWER RESPIRATORY TRACT INFECTION [None]
  - TEMPORAL ARTERITIS [None]
